FAERS Safety Report 6694284-7 (Version None)
Quarter: 2010Q2

REPORT INFORMATION
  Report Type: 
  Country: None (occurrence: None)
  Receive Date: 20100423
  Receipt Date: 20100419
  Transmission Date: 20101027
  Serious: Yes (Death, Hospitalization, Other)
  Sender: FDA-Public Use
  Company Number: CA-ABBOTT-10P-028-0639543-00

PATIENT
  Sex: Female

DRUGS (1)
  1. HUMIRA [Suspect]
     Indication: RHEUMATOID ARTHRITIS
     Route: 058
     Dates: start: 20051201, end: 20100408

REACTIONS (5)
  - CARDIAC DISORDER [None]
  - FALL [None]
  - OSTEOPOROTIC FRACTURE [None]
  - PNEUMONIA ASPIRATION [None]
  - RESTRICTIVE PULMONARY DISEASE [None]
